FAERS Safety Report 5533161-1 (Version None)
Quarter: 2007Q4

REPORT INFORMATION
  Report Type: 
  Country: None (occurrence: None)
  Receive Date: 20071130
  Receipt Date: 20071130
  Transmission Date: 20080405
  Serious: Yes (Death)
  Sender: FDA-Public Use
  Company Number: None

PATIENT
  Age: 62 Year
  Sex: Female
  Weight: 106.5953 kg

DRUGS (2)
  1. CYCLOPHOSPHAMIDE [Suspect]
     Dosage: 1 GRAM/M2  ONCE  IV
     Route: 042
     Dates: start: 20071009, end: 20071009
  2. AHN NY-ESO#276 [Suspect]
     Indication: OVARIAN CANCER
     Dosage: 4.3 BILLION CELLS  ONCE  IV
     Route: 042
     Dates: start: 20071011, end: 20071011

REACTIONS (16)
  - ABDOMINAL WALL HAEMATOMA [None]
  - ACIDOSIS [None]
  - ACUTE RESPIRATORY DISTRESS SYNDROME [None]
  - ALVEOLITIS ALLERGIC [None]
  - AUTOIMMUNE DISORDER [None]
  - HYPOTENSION [None]
  - INFUSION RELATED REACTION [None]
  - INTESTINAL ISCHAEMIA [None]
  - LOSS OF CONSCIOUSNESS [None]
  - LUNG DISORDER [None]
  - LUNG INFECTION [None]
  - LYMPHOPENIA [None]
  - NEUTROPENIA [None]
  - PERITONEAL HAEMATOMA [None]
  - REFUSAL OF TREATMENT BY RELATIVE [None]
  - THROMBOCYTOPENIA [None]
